FAERS Safety Report 20734895 (Version 1)
Quarter: 2022Q2

REPORT INFORMATION
  Report Type: Spontaneous
  Country: US (occurrence: None)
  Receive Date: 20220420
  Receipt Date: 20220420
  Transmission Date: 20220721
  Serious: Yes (Other)
  Sender: FDA-Public Use
  Company Number: None

PATIENT
  Age: 66 Year
  Sex: Female
  Weight: 61.2 kg

DRUGS (1)
  1. PANTOPRAZOLE SODIUM [Suspect]
     Active Substance: PANTOPRAZOLE SODIUM
     Indication: Gastrooesophageal reflux disease
     Dosage: OTHER QUANTITY : 1 CAPSULE(S);?FREQUENCY : DAILY;?
     Route: 048
     Dates: start: 20220326, end: 20220410

REACTIONS (6)
  - Gastrointestinal pain [None]
  - Gastrointestinal pain [None]
  - Diarrhoea [None]
  - Feeling jittery [None]
  - Tremor [None]
  - Blood pressure increased [None]

NARRATIVE: CASE EVENT DATE: 20220410
